FAERS Safety Report 8235448-0 (Version None)
Quarter: 2012Q1

REPORT INFORMATION
  Report Type: 
  Country: None (occurrence: None)
  Receive Date: 20120326
  Receipt Date: 20120315
  Transmission Date: 20120608
  Serious: Yes (Other)
  Sender: FDA-Public Use
  Company Number: PHHY2012SG020363

PATIENT
  Sex: Female

DRUGS (5)
  1. HYDRALAZINE HCL [Suspect]
  2. CARVEDILOL [Concomitant]
  3. METHYLDOPA [Concomitant]
  4. AMLODIPINE [Suspect]
  5. NIFEDIPINE [Suspect]

REACTIONS (2)
  - DIARRHOEA [None]
  - PNEUMONIA [None]
